FAERS Safety Report 17797955 (Version 1)
Quarter: 2020Q2

REPORT INFORMATION
  Report Type: Spontaneous
  Country: US (occurrence: US)
  Receive Date: 20200516
  Receipt Date: 20200516
  Transmission Date: 20200714
  Serious: Yes (Other)
  Sender: FDA-Public Use
  Company Number: None

PATIENT
  Age: 51 Year
  Sex: Female
  Weight: 51.75 kg

DRUGS (2)
  1. LEVOCETIRIZINE [Suspect]
     Active Substance: LEVOCETIRIZINE
     Indication: COUGH
     Dosage: ?          QUANTITY:1 TABLET(S);OTHER FREQUENCY:EVERY EVENING;?
     Route: 048
     Dates: start: 20200515, end: 20200516
  2. CLARITIN-D 24 HOUR [Suspect]
     Active Substance: LORATADINE\PSEUDOEPHEDRINE SULFATE

REACTIONS (7)
  - Disorientation [None]
  - Hyperhidrosis [None]
  - Feeling cold [None]
  - Myalgia [None]
  - Palpitations [None]
  - Peripheral coldness [None]
  - Dry mouth [None]

NARRATIVE: CASE EVENT DATE: 20200515
